FAERS Safety Report 8128301-4 (Version None)
Quarter: 2012Q1

REPORT INFORMATION
  Report Type: 
  Country: None (occurrence: None)
  Receive Date: 20120210
  Receipt Date: 20120201
  Transmission Date: 20120608
  Serious: Yes (Hospitalization)
  Sender: FDA-Public Use
  Company Number: CR-ROCHE-1036582

PATIENT
  Sex: Male

DRUGS (2)
  1. OXALIPLATIN [Concomitant]
  2. AVASTIN [Suspect]
     Indication: COLON CANCER
     Route: 042
     Dates: start: 20111102

REACTIONS (2)
  - METASTASES TO LIVER [None]
  - LIVER OPERATION [None]
